FAERS Safety Report 6354458-1 (Version None)
Quarter: 2009Q3

REPORT INFORMATION
  Report Type: 
  Country: None (occurrence: None)
  Receive Date: 20090909
  Receipt Date: 20090806
  Transmission Date: 20100115
  Serious: Yes (Other)
  Sender: FDA-Public Use
  Company Number: 2009-1834

PATIENT
  Age: 47 Year
  Sex: Female

DRUGS (1)
  1. DYSPORT [Suspect]
     Dosage: ONE CYCLE
     Dates: start: 20090805

REACTIONS (6)
  - DYSPHAGIA [None]
  - HYPOAESTHESIA FACIAL [None]
  - LOCAL SWELLING [None]
  - SENSORY DISTURBANCE [None]
  - SWELLING FACE [None]
  - THROAT TIGHTNESS [None]
